FAERS Safety Report 26176671 (Version 1)
Quarter: 2025Q4

REPORT INFORMATION
  Report Type: Spontaneous
  Country: US (occurrence: US)
  Receive Date: 20251218
  Receipt Date: 20251218
  Transmission Date: 20260117
  Serious: No
  Sender: PHARMING GROUP
  Company Number: US-PHARMING-PHAUS2025001689

PATIENT

DRUGS (4)
  1. RUCONEST [Suspect]
     Active Substance: CONESTAT ALFA
     Indication: Hereditary angioedema
     Dosage: 2720 IU, AS NEEDED
     Route: 042
     Dates: start: 202510
  2. GATTEX [Concomitant]
     Active Substance: TEDUGLUTIDE\WATER
     Indication: Product used for unknown indication
  3. DUPIXENT [Concomitant]
     Active Substance: DUPILUMAB
     Indication: Product used for unknown indication
  4. ICATIBANT [Concomitant]
     Active Substance: ICATIBANT ACETATE
     Indication: Product used for unknown indication

REACTIONS (2)
  - Weight increased [Unknown]
  - Underdose [Unknown]
